FAERS Safety Report 16708102 (Version 1)
Quarter: 2019Q3

REPORT INFORMATION
  Report Type: Spontaneous
  Country: US (occurrence: US)
  Receive Date: 20190701
  Receipt Date: 20190701
  Transmission Date: 20191004
  Serious: No
  Sender: FDA-Public Use
  Company Number: None

PATIENT
  Age: 59 Year
  Sex: Female

DRUGS (1)
  1. NUCALA [Suspect]
     Active Substance: MEPOLIZUMAB
     Indication: ASTHMA
     Dosage: ?          OTHER FREQUENCY:EVERY4WEEKS ;?
     Route: 058
     Dates: start: 201712

REACTIONS (3)
  - Skin exfoliation [None]
  - Eye pruritus [None]
  - Eye irritation [None]

NARRATIVE: CASE EVENT DATE: 201905
